FAERS Safety Report 12934383 (Version 1)
Quarter: 2016Q4

REPORT INFORMATION
  Report Type: Spontaneous
  Country: US (occurrence: US)
  Receive Date: 20161111
  Receipt Date: 20161111
  Transmission Date: 20170207
  Serious: No
  Sender: FDA-Public Use
  Company Number: US-ELI_LILLY_AND_COMPANY-US201607006199

PATIENT
  Sex: Female
  Weight: 95.24 kg

DRUGS (7)
  1. CYMBALTA [Suspect]
     Active Substance: DULOXETINE HYDROCHLORIDE
     Dosage: 30 MG, QD
     Route: 065
     Dates: end: 201505
  2. CYMBALTA [Suspect]
     Active Substance: DULOXETINE HYDROCHLORIDE
     Indication: PRODUCT USED FOR UNKNOWN INDICATION
     Dosage: 60 MG, QD
     Route: 065
     Dates: start: 20121218, end: 20150424
  3. OMNARIS [Concomitant]
     Active Substance: CICLESONIDE
     Indication: PRODUCT USED FOR UNKNOWN INDICATION
     Dosage: UNK, UNKNOWN
     Route: 065
  4. PRILOSEC [Concomitant]
     Active Substance: OMEPRAZOLE MAGNESIUM
     Indication: GASTROOESOPHAGEAL REFLUX DISEASE
     Dosage: 40 MG, BID
     Route: 065
  5. HYDROCHLOROTHIAZIDE. [Concomitant]
     Active Substance: HYDROCHLOROTHIAZIDE
     Indication: PERIPHERAL SWELLING
     Dosage: 25 MG, QD
     Route: 065
  6. K-DUR [Concomitant]
     Active Substance: POTASSIUM CHLORIDE
     Dosage: 10 MEQ, QD
     Route: 065
  7. SYNTHROID [Concomitant]
     Active Substance: LEVOTHYROXINE SODIUM
     Indication: HYPOTHYROIDISM
     Dosage: 50 UG, QD
     Route: 065

REACTIONS (17)
  - Diarrhoea [Unknown]
  - Confusional state [Unknown]
  - Paraesthesia [Unknown]
  - Dizziness [Unknown]
  - Tinnitus [Unknown]
  - Fatigue [Unknown]
  - Irritability [Unknown]
  - Agitation [Unknown]
  - Headache [Unknown]
  - Drug withdrawal syndrome [Unknown]
  - Vertigo [Unknown]
  - Nausea [Unknown]
  - Anxiety [Unknown]
  - Sensory disturbance [Unknown]
  - Dysphoria [Unknown]
  - Affect lability [Unknown]
  - Insomnia [Unknown]
